FAERS Safety Report 14022782 (Version 1)
Quarter: 2017Q3

REPORT INFORMATION
  Report Type: Spontaneous
  Country: US (occurrence: US)
  Receive Date: 20170929
  Receipt Date: 20170929
  Transmission Date: 20171128
  Serious: No
  Sender: FDA-Public Use
  Company Number: US-009507513-1709USA013034

PATIENT
  Age: 37 Year
  Sex: Female

DRUGS (1)
  1. CELESTONE SOLUSPAN [Suspect]
     Active Substance: BETAMETHASONE ACETATE\BETAMETHASONE SODIUM PHOSPHATE
     Indication: BACK PAIN
     Dosage: 6 MG, ONLY ONE INJECTION
     Dates: start: 20170913, end: 20170913

REACTIONS (4)
  - Neurological symptom [Not Recovered/Not Resolved]
  - Paraesthesia [Not Recovered/Not Resolved]
  - Pain [Not Recovered/Not Resolved]
  - Neuritis [Not Recovered/Not Resolved]

NARRATIVE: CASE EVENT DATE: 20170915
